FAERS Safety Report 14832546 (Version 1)
Quarter: 2018Q2

REPORT INFORMATION
  Report Type: Spontaneous
  Country: US (occurrence: US)
  Receive Date: 20180409
  Receipt Date: 20180409
  Transmission Date: 20180711
  Serious: Yes (Hospitalization, Disabling)
  Sender: FDA-Public Use
  Company Number: None

PATIENT

DRUGS (4)
  1. LYRICA [Suspect]
     Active Substance: PREGABALIN
     Indication: MYALGIA
     Dosage: ?          QUANTITY:1 TABLET(S);?
     Route: 048
  2. TECFIDERA [Concomitant]
     Active Substance: DIMETHYL FUMARATE
  3. IBUPROFEN. [Concomitant]
     Active Substance: IBUPROFEN
  4. VITAMIN D [Concomitant]
     Active Substance: CHOLECALCIFEROL

REACTIONS (9)
  - Renal cyst [None]
  - Diplopia [None]
  - Hepatic cyst [None]
  - Abdominal pain upper [None]
  - Abdominal distension [None]
  - Hallucination [None]
  - Paraesthesia [None]
  - Eye swelling [None]
  - Gait disturbance [None]

NARRATIVE: CASE EVENT DATE: 20170301
